FAERS Safety Report 22636267 (Version 1)
Quarter: 2023Q2

REPORT INFORMATION
  Report Type: Report from Study
  Country: US (occurrence: US)
  Receive Date: 20230623
  Receipt Date: 20230623
  Transmission Date: 20230722
  Serious: Yes (Other)
  Sender: FDA-Public Use
  Company Number: US-JNJFOC-20220843105

PATIENT
  Age: 74 Year
  Sex: Male
  Weight: 82 kg

DRUGS (6)
  1. TECLISTAMAB [Suspect]
     Active Substance: TECLISTAMAB
     Indication: Plasma cell myeloma
     Route: 058
     Dates: start: 20220302, end: 20220803
  2. LENALIDOMIDE [Suspect]
     Active Substance: LENALIDOMIDE
     Indication: Plasma cell myeloma
     Dosage: LOCALLY SOURCED
     Route: 048
     Dates: start: 20220330, end: 20220810
  3. ACYCLOVIR [Concomitant]
     Active Substance: ACYCLOVIR
     Indication: Prophylaxis
     Route: 048
     Dates: start: 20211114
  4. DAPSONE [Concomitant]
     Active Substance: DAPSONE
     Indication: Prophylaxis
     Route: 048
     Dates: start: 20220525
  5. AQUAPHOR [Concomitant]
     Active Substance: PETROLATUM
     Indication: Rash
     Dosage: 1 NO UNITS
     Route: 061
     Dates: start: 20220525
  6. MAGNESIUM OXIDE [Concomitant]
     Active Substance: MAGNESIUM OXIDE
     Indication: Hypomagnesaemia
     Dosage: 400 MG
     Route: 048
     Dates: start: 20220817, end: 20221012

REACTIONS (1)
  - Syncope [Recovered/Resolved]

NARRATIVE: CASE EVENT DATE: 20220817
